FAERS Safety Report 7573800-7 (Version None)
Quarter: 2011Q2

REPORT INFORMATION
  Report Type: 
  Country: None (occurrence: None)
  Receive Date: 20110627
  Receipt Date: 20110620
  Transmission Date: 20111010
  Serious: Yes (Hospitalization)
  Sender: FDA-Public Use
  Company Number: US-SANOFI-AVENTIS-2011SA039416

PATIENT
  Age: 75 Year
  Sex: Female
  Weight: 57 kg

DRUGS (23)
  1. SODIUM CHLORIDE [Concomitant]
     Route: 042
     Dates: start: 20110215, end: 20110215
  2. CEFEPIME [Concomitant]
     Indication: PROPHYLAXIS
     Route: 041
     Dates: start: 20110405, end: 20110405
  3. OXYCONTIN [Suspect]
     Route: 065
  4. DEXAMETHASONE [Concomitant]
     Indication: PREMEDICATION
     Route: 041
     Dates: start: 20110307, end: 20110307
  5. DOCETAXEL [Suspect]
     Dosage: EVERY 21 DAYS
     Route: 041
     Dates: start: 20110418, end: 20110418
  6. PALONOSETRON [Concomitant]
     Indication: PREMEDICATION
     Dosage: IV PUSH
     Route: 042
     Dates: start: 20110307, end: 20110307
  7. ONDANSETRON [Concomitant]
     Indication: NAUSEA
     Route: 041
     Dates: start: 20110405, end: 20110405
  8. DIPHENHYDRAMINE HCL [Concomitant]
     Indication: PREMEDICATION
     Route: 048
     Dates: start: 20110215, end: 20110215
  9. DEXAMETHASONE [Concomitant]
     Route: 041
     Dates: start: 20110328, end: 20110328
  10. PALONOSETRON [Concomitant]
     Dosage: IV PUSH
     Route: 042
     Dates: start: 20110328, end: 20110328
  11. INVESTIGATIONAL DRUG [Suspect]
     Indication: NEOPLASM MALIGNANT
     Dosage: EVERY 21 DAYS
     Route: 042
     Dates: start: 20110124, end: 20110124
  12. ESOMEPRAZOLE MAGNESIUM [Concomitant]
     Route: 041
     Dates: start: 20110405, end: 20110405
  13. SODIUM CHLORIDE [Concomitant]
     Route: 042
     Dates: start: 20110328, end: 20110328
  14. SODIUM CHLORIDE [Concomitant]
     Route: 042
     Dates: start: 20110405, end: 20110405
  15. ACETAMINOPHEN [Concomitant]
     Indication: PREMEDICATION
     Route: 048
     Dates: start: 20110215, end: 20110215
  16. DIPHENHYDRAMINE HCL [Concomitant]
     Route: 048
     Dates: start: 20110328, end: 20110328
  17. FAMOTIDINE [Concomitant]
     Route: 041
     Dates: start: 20110328, end: 20110328
  18. POTASSIUM CHLORIDE [Concomitant]
     Route: 041
     Dates: start: 20110405, end: 20110405
  19. DOCETAXEL [Suspect]
     Indication: NEOPLASM MALIGNANT
     Dosage: EVERY 21 DAYS
     Route: 041
     Dates: start: 20110124, end: 20110124
  20. INVESTIGATIONAL DRUG [Suspect]
     Dosage: EVERY 21 DAYS
     Route: 042
     Dates: start: 20110418, end: 20110418
  21. SODIUM CHLORIDE [Concomitant]
     Route: 042
     Dates: start: 20110307, end: 20110307
  22. FAMOTIDINE [Concomitant]
     Indication: PREMEDICATION
     Route: 041
     Dates: start: 20110307, end: 20110307
  23. ZOLEDRONIC ACID [Concomitant]
     Route: 041
     Dates: start: 20110328, end: 20110328

REACTIONS (8)
  - DEHYDRATION [None]
  - ANAEMIA [None]
  - LYMPHOPENIA [None]
  - BLOOD PHOSPHORUS ABNORMAL [None]
  - URINARY RETENTION [None]
  - DYSPNOEA [None]
  - CONSTIPATION [None]
  - WHITE BLOOD CELL COUNT DECREASED [None]
